FAERS Safety Report 9742594 (Version 1)
Quarter: 2013Q4

REPORT INFORMATION
  Report Type: Spontaneous
  Country: US (occurrence: US)
  Receive Date: 20131210
  Receipt Date: 20131210
  Transmission Date: 20140711
  Serious: No
  Sender: FDA-Public Use
  Company Number: US-GILEAD-2009-0024647

PATIENT
  Sex: Female
  Weight: 52.16 kg

DRUGS (10)
  1. LETAIRIS [Suspect]
     Indication: PULMONARY ARTERIAL HYPERTENSION
     Route: 048
     Dates: start: 20090906, end: 20091006
  2. COUMADIN [Concomitant]
  3. CYMBALTA [Concomitant]
  4. EVISTA [Concomitant]
  5. DILTIAZEM [Concomitant]
  6. CALTRATE-600 [Concomitant]
  7. COSOPT [Concomitant]
  8. PREDNISONE [Concomitant]
  9. HYDROCHLOROTHIAZIDE [Concomitant]
  10. MULTIVITAMINS [Concomitant]

REACTIONS (1)
  - Unevaluable event [Unknown]
